FAERS Safety Report 7055706-5 (Version None)
Quarter: 2010Q4

REPORT INFORMATION
  Report Type: 
  Country: None (occurrence: None)
  Receive Date: 20101021
  Receipt Date: 20101013
  Transmission Date: 20110411
  Serious: Yes (Hospitalization, Other)
  Sender: FDA-Public Use
  Company Number: JP-ROCHE-669127

PATIENT
  Sex: Male
  Weight: 68 kg

DRUGS (3)
  1. TAMIFLU [Suspect]
     Indication: INFLUENZA
     Route: 048
     Dates: start: 20091028, end: 20091028
  2. SYMMETREL [Suspect]
     Indication: INFLUENZA
     Route: 048
  3. SYMMETREL [Suspect]
     Dosage: DRUG: AMANTADINE HYDROCHLORIDE, DOSE FORM: PERORAL AGENT
     Route: 048
     Dates: start: 20091028, end: 20091102

REACTIONS (2)
  - APLASTIC ANAEMIA [None]
  - LIVER DISORDER [None]
